FAERS Safety Report 8362649-3 (Version None)
Quarter: 2012Q2

REPORT INFORMATION
  Report Type: 
  Country: None (occurrence: None)
  Receive Date: 20120516
  Receipt Date: 20120514
  Transmission Date: 20120825
  Serious: No
  Sender: FDA-Public Use
  Company Number: US-PFIZER INC-2012117788

PATIENT
  Sex: Female
  Weight: 65.76 kg

DRUGS (9)
  1. IRON [Concomitant]
     Dosage: 325 MG, DAILY
  2. VITAMIN A [Concomitant]
     Dosage: 1000 IU, DAILY
  3. VITAMIN B COMPLEX CAP [Concomitant]
     Dosage: 500 MG, DAILY
  4. CHANTIX [Suspect]
     Indication: SMOKING CESSATION THERAPY
     Dosage: 0.5 MG, DAILY
     Route: 048
     Dates: start: 20120506
  5. ASCORBIC ACID [Concomitant]
     Dosage: 500 MG, DAILY
  6. DEPAKOTE [Concomitant]
     Indication: EPILEPSY
     Dosage: 1000 MG, 2X/DAY
  7. ZONISAMIDE [Concomitant]
     Indication: EPILEPSY
     Dosage: 200 MG, 2X/DAY
  8. EFFEXOR [Concomitant]
     Indication: ANXIETY
     Dosage: 150 MG, DAILY
  9. VITAMIN D [Concomitant]
     Dosage: 1000 IU, DAILY

REACTIONS (6)
  - DECREASED APPETITE [None]
  - ABDOMINAL PAIN UPPER [None]
  - ABDOMINAL DISCOMFORT [None]
  - INSOMNIA [None]
  - DIARRHOEA [None]
  - VOMITING [None]
